FAERS Safety Report 8166852-7 (Version None)
Quarter: 2012Q1

REPORT INFORMATION
  Report Type: 
  Country: None (occurrence: None)
  Receive Date: 20120221
  Receipt Date: 20120206
  Transmission Date: 20120608
  Serious: Yes (Other)
  Sender: FDA-Public Use
  Company Number: 1000028407

PATIENT

DRUGS (1)
  1. ESCITALOPRAM OXALATE [Suspect]
     Dosage: DAILY DOSE NOT REPORTED, ORAL
     Route: 048

REACTIONS (1)
  - INTENTIONAL SELF-INJURY [None]
